FAERS Safety Report 19162348 (Version 1)
Quarter: 2021Q2

REPORT INFORMATION
  Report Type: Spontaneous
  Country: US (occurrence: US)
  Receive Date: 20210419
  Receipt Date: 20210419
  Transmission Date: 20210717
  Serious: Yes (Hospitalization)
  Sender: FDA-Public Use
  Company Number: None

PATIENT
  Age: 15 Year
  Sex: Female
  Weight: 76.95 kg

DRUGS (7)
  1. DULOXETINE DR 37.5MG CAPSULES [Suspect]
     Active Substance: DULOXETINE
     Indication: DEPRESSION
     Dosage: ?          QUANTITY:7 DF DOSAGE FORM;?
     Route: 048
     Dates: start: 20210319, end: 20210418
  2. GUANFACINE. [Concomitant]
     Active Substance: GUANFACINE
  3. AUROVELA FE [Concomitant]
     Active Substance: ETHINYL ESTRADIOL\NORETHINDRONE ACETATE
  4. MELATONIN [Concomitant]
     Active Substance: MELATONIN
  5. DULOXETINE DR 37.5MG CAPSULES [Suspect]
     Active Substance: DULOXETINE
     Indication: AFFECTIVE DISORDER
     Dosage: ?          QUANTITY:7 DF DOSAGE FORM;?
     Route: 048
     Dates: start: 20210319, end: 20210418
  6. ARIPIPRAZOLE. [Concomitant]
     Active Substance: ARIPIPRAZOLE
  7. TYLENOL [Concomitant]
     Active Substance: ACETAMINOPHEN

REACTIONS (5)
  - Disinhibition [None]
  - Suicidal ideation [None]
  - Thinking abnormal [None]
  - Insomnia [None]
  - Intentional self-injury [None]

NARRATIVE: CASE EVENT DATE: 20210410
